FAERS Safety Report 5812092-3 (Version None)
Quarter: 2008Q3

REPORT INFORMATION
  Report Type: 
  Country: None (occurrence: None)
  Receive Date: 20080716
  Receipt Date: 20080711
  Transmission Date: 20090109
  Serious: Yes (Other)
  Sender: FDA-Public Use
  Company Number: CM-BOEHRINGER INGELHEIM GMBH, GERMANY-2008-DE-04017GD

PATIENT

DRUGS (2)
  1. NEVIRAPINE [Suspect]
     Indication: HUMAN IMMUNODEFICIENCY VIRUS TRANSMISSION
  2. NEVIRAPINE [Suspect]
     Indication: PROPHYLAXIS

REACTIONS (3)
  - DRUG RESISTANCE [None]
  - HIV INFECTION [None]
  - VIRAL MUTATION IDENTIFIED [None]
